FAERS Safety Report 22519286 (Version 1)
Quarter: 2023Q2

REPORT INFORMATION
  Report Type: Spontaneous
  Country: IE (occurrence: IE)
  Receive Date: 20230605
  Receipt Date: 20230605
  Transmission Date: 20230721
  Serious: Yes (Other)
  Sender: FDA-Public Use
  Company Number: None

PATIENT

DRUGS (11)
  1. FLUTICASONE FUROATE\VILANTEROL TRIFENATATE [Suspect]
     Active Substance: FLUTICASONE FUROATE\VILANTEROL TRIFENATATE
     Indication: Cough
     Dosage: 1 DF, QD (ONE PUFF DAILY)
     Route: 055
     Dates: start: 20230503, end: 20230505
  2. EXPUTEX [Concomitant]
     Indication: Cough
     Dosage: 10 ML, TID ( 250MG / 5ML ORAL SOLUTION)
     Route: 048
     Dates: start: 20230503
  3. TRULICITY [Concomitant]
     Active Substance: DULAGLUTIDE
     Indication: Diabetes mellitus
     Dosage: 1.5 MG, WE (ONE INJECTION WEEKLY )
     Route: 065
     Dates: start: 20180802
  4. GAVISCON (CALCIUM + SODIUM ALGINATE + SODIUM BICARBONATE) [Concomitant]
     Indication: Gastrooesophageal reflux disease
     Dosage: UNK (AS REQUIRED)
     Route: 065
     Dates: start: 20230503
  5. GAVISCON (CALCIUM + SODIUM ALGINATE + SODIUM BICARBONATE) [Concomitant]
     Indication: Dyspepsia
  6. SYNJARDY [Concomitant]
     Active Substance: EMPAGLIFLOZIN\METFORMIN HYDROCHLORIDE
     Indication: Diabetes mellitus
     Dosage: UNK UNK, BID (12 HRS)
     Route: 065
     Dates: start: 20220804
  7. ETOFLAM [Concomitant]
     Indication: Myalgia
     Dosage: UNK UNK, TID (APPLIED THREE TIMES DAILY WHEN REQUIRED)
     Route: 065
     Dates: start: 20221007
  8. FLUTICASONE FUROATE [Concomitant]
     Active Substance: FLUTICASONE FUROATE
     Indication: Sinusitis
     Dosage: UNK UNK, QD (ONE SPRAY INTO EACH NOSTRIL DAILY)
     Route: 065
     Dates: start: 20230424
  9. DOXYCYCLINE [Concomitant]
     Active Substance: DOXYCYCLINE
     Indication: Upper respiratory tract infection
     Dosage: 100 MG, BID
     Route: 048
     Dates: start: 20230503, end: 20230508
  10. FLUCONAZOLE [Concomitant]
     Active Substance: FLUCONAZOLE
     Indication: Candida infection
     Dosage: 150 MG
     Route: 065
     Dates: start: 20230503, end: 20230503
  11. PANTOPRAZOLE [Concomitant]
     Active Substance: PANTOPRAZOLE
     Indication: Gastrooesophageal reflux disease
     Dosage: 40 MG, QD
     Route: 065
     Dates: start: 20210309

REACTIONS (3)
  - Aggression [Recovered/Resolved]
  - Impulse-control disorder [Recovered/Resolved]
  - Agitation [Recovered/Resolved]

NARRATIVE: CASE EVENT DATE: 20230503
